FAERS Safety Report 16426293 (Version 3)
Quarter: 2019Q2

REPORT INFORMATION
  Report Type: Spontaneous
  Country: JP (occurrence: JP)
  Receive Date: 20190613
  Receipt Date: 20190627
  Transmission Date: 20190711
  Serious: Yes (Other)
  Sender: FDA-Public Use
  Company Number: JP-JNJFOC-20190616000

PATIENT
  Age: 35 Year
  Sex: Female

DRUGS (3)
  1. LEUPRORELIN [Suspect]
     Active Substance: LEUPROLIDE ACETATE
     Indication: ENDOMETRIOSIS
     Route: 065
  2. NORETHINDRONE AND ETHINYL ESTRADIOL [Suspect]
     Active Substance: ETHINYL ESTRADIOL\NORETHINDRONE
     Indication: ENDOMETRIOSIS
     Route: 065
  3. ETHINYLESTRADIOL W/NORETHINDRONE [Suspect]
     Active Substance: ETHINYL ESTRADIOL\NORETHINDRONE
     Indication: ENDOMETRIOSIS
     Dosage: 1 MG NORETHINDRONE COMBINED WITH 0.035 MG OF ETHINYLESTRADIOL WAS ADMINISTERED FOR 24 MONTHS
     Route: 065

REACTIONS (1)
  - Ovarian clear cell carcinoma [Unknown]
